FAERS Safety Report 7213521-3 (Version None)
Quarter: 2011Q1

REPORT INFORMATION
  Report Type: 
  Country: None (occurrence: None)
  Receive Date: 20110106
  Receipt Date: 20101227
  Transmission Date: 20110831
  Serious: Yes (Hospitalization)
  Sender: FDA-Public Use
  Company Number: US-BAXTER-2010BH029994

PATIENT
  Sex: Female

DRUGS (2)
  1. DIANEAL [Suspect]
     Indication: PERITONEAL DIALYSIS
     Route: 033
     Dates: start: 20090701
  2. ^ORAL MEDICATIONS TO CONTROL PARATHYROID LEVELS^ [Suspect]
     Indication: HYPERPARATHYROIDISM
     Route: 065

REACTIONS (5)
  - WEIGHT DECREASED [None]
  - DRUG INTOLERANCE [None]
  - DECREASED APPETITE [None]
  - BLOOD PARATHYROID HORMONE INCREASED [None]
  - NAUSEA [None]
